FAERS Safety Report 25702873 (Version 6)
Quarter: 2025Q4

REPORT INFORMATION
  Report Type: Spontaneous
  Country: US (occurrence: US)
  Receive Date: 20250819
  Receipt Date: 20251230
  Transmission Date: 20260118
  Serious: No
  Sender: BLUEPRINT MEDICINES
  Company Number: US-Blueprint Medicines Corporation-2025-AER-01821

PATIENT
  Age: 44 Year
  Sex: Female

DRUGS (2)
  1. AYVAKIT [Suspect]
     Active Substance: AVAPRITINIB
     Indication: Systemic mastocytosis
     Route: 065
     Dates: start: 20250812
  2. AYVAKIT [Suspect]
     Active Substance: AVAPRITINIB
     Route: 065
     Dates: start: 20250812

REACTIONS (22)
  - Nausea [Unknown]
  - Pain [Unknown]
  - Dizziness [Unknown]
  - Fatigue [Unknown]
  - COVID-19 [Unknown]
  - Nasopharyngitis [Unknown]
  - Confusional state [Unknown]
  - Amnesia [Unknown]
  - Hypersomnia [Unknown]
  - Aphasia [Unknown]
  - Brain fog [Unknown]
  - Product dose omission issue [Unknown]
  - Influenza [Unknown]
  - Ear infection [Unknown]
  - Vomiting [Unknown]
  - Headache [Unknown]
  - Feeling abnormal [Unknown]
  - Temporomandibular pain and dysfunction syndrome [Unknown]
  - Anxiety [Unknown]
  - Memory impairment [Unknown]
  - Insomnia [Unknown]
  - Ligament sprain [Unknown]

NARRATIVE: CASE EVENT DATE: 20250827
